FAERS Safety Report 4587506-X (Version None)
Quarter: 2005Q1

REPORT INFORMATION
  Report Type: 
  Country: None (occurrence: None)
  Receive Date: 20050215
  Receipt Date: 20050203
  Transmission Date: 20050727
  Serious: Yes (Other)
  Sender: FDA-Public Use
  Company Number: CHPA2005US00593

PATIENT
  Age: 80 Year
  Sex: Male

DRUGS (4)
  1. MAALOX ANTACID/ANTIGAS RS LIQ COOL MINT (NCH) (MAGNESIUM HYDROXIDE, AL [Suspect]
     Indication: FLATULENCE
     Dosage: 3 TSP, ONCE/SINGLE, ORAL
     Route: 048
     Dates: start: 20050201
  2. MAALOX ANTACID/ANTIGAS RS LIQ COOL MINT (NCH) (MAGNESIUM HYDROXIDE, AL [Suspect]
     Indication: FLATULENCE
     Dosage: 3 TSP, ONCE/SINGLE, ORAL
     Route: 048
     Dates: start: 20050202
  3. PRILOSEC [Suspect]
     Indication: FLATULENCE
     Dosage: SEE IMAGE
     Route: 048
     Dates: start: 20050101
  4. PRILOSEC [Suspect]
     Indication: FLATULENCE
     Dosage: SEE IMAGE
     Route: 048
     Dates: start: 20050201

REACTIONS (2)
  - HYPERHIDROSIS [None]
  - LOSS OF CONSCIOUSNESS [None]
